FAERS Safety Report 9154858 (Version 1)
Quarter: 2013Q1

REPORT INFORMATION
  Report Type: Spontaneous
  Country: US (occurrence: None)
  Receive Date: 20130305
  Receipt Date: 20130305
  Transmission Date: 20140127
  Serious: Yes (Life-Threatening)
  Sender: FDA-Public Use
  Company Number: None

PATIENT
  Age: 52 Year
  Sex: Male
  Weight: 80 kg

DRUGS (1)
  1. HURRICAINE TOPICAL ANESTHETIC SPRAY [Suspect]
     Dosage: LIBERAL APPLICATION PER RN ONCE OROPHARINGEAL
     Dates: start: 20130327

REACTIONS (2)
  - Methaemoglobinaemia [None]
  - Hypotension [None]
